FAERS Safety Report 15279086 (Version 1)
Quarter: 2018Q3

REPORT INFORMATION
  Report Type: Spontaneous
  Country: US (occurrence: US)
  Receive Date: 20180730
  Receipt Date: 20180730
  Transmission Date: 20181010
  Serious: No
  Sender: FDA-Public Use
  Company Number: None

PATIENT
  Age: 42 Year
  Sex: Male
  Weight: 71.55 kg

DRUGS (3)
  1. MULTI VITAMINS [Concomitant]
     Active Substance: VITAMINS
  2. CLARITIN LIQUI?GELS [Suspect]
     Active Substance: LORATADINE
     Indication: HYPERSENSITIVITY
     Dosage: QUANTITY:10 LIQUI GEL;OTHER FREQUENCY:UNKOWN;?
     Route: 048
     Dates: start: 20180726
  3. CLARITIN LIQUI?GELS [Suspect]
     Active Substance: LORATADINE
     Indication: RHINORRHOEA
     Dosage: QUANTITY:10 LIQUI GEL;OTHER FREQUENCY:UNKOWN;?
     Route: 048
     Dates: start: 20180726

REACTIONS (1)
  - Product label confusion [None]

NARRATIVE: CASE EVENT DATE: 20180727
